FAERS Safety Report 25045844 (Version 1)
Quarter: 2025Q1

REPORT INFORMATION
  Report Type: Spontaneous
  Country: FR (occurrence: FR)
  Receive Date: 20250306
  Receipt Date: 20250306
  Transmission Date: 20250408
  Serious: Yes (Other)
  Sender: MYLAN
  Company Number: FR-MYLANLABS-2025M1018346

PATIENT
  Age: 14 Year
  Sex: Male

DRUGS (8)
  1. ETOPOSIDE [Suspect]
     Active Substance: ETOPOSIDE
     Indication: Medulloblastoma
     Dosage: 15 MILLIGRAM/SQ. METER, QD, 15 MG/M2/DOSE
  2. ETOPOSIDE [Suspect]
     Active Substance: ETOPOSIDE
     Dosage: 15 MILLIGRAM/SQ. METER, QD, 15 MG/M2/DOSE
     Route: 048
  3. ETOPOSIDE [Suspect]
     Active Substance: ETOPOSIDE
     Dosage: 15 MILLIGRAM/SQ. METER, QD, 15 MG/M2/DOSE
     Route: 048
  4. ETOPOSIDE [Suspect]
     Active Substance: ETOPOSIDE
     Dosage: 15 MILLIGRAM/SQ. METER, QD, 15 MG/M2/DOSE
  5. AXITINIB [Suspect]
     Active Substance: AXITINIB
     Indication: Medulloblastoma
     Dosage: 1.6 MILLIGRAM/SQ. METER, BID, 1.6 MG/M2/DOSE
  6. AXITINIB [Suspect]
     Active Substance: AXITINIB
     Dosage: 1.6 MILLIGRAM/SQ. METER, BID, 1.6 MG/M2/DOSE
     Route: 048
  7. AXITINIB [Suspect]
     Active Substance: AXITINIB
     Dosage: 1.6 MILLIGRAM/SQ. METER, BID, 1.6 MG/M2/DOSE
     Route: 048
  8. AXITINIB [Suspect]
     Active Substance: AXITINIB
     Dosage: 1.6 MILLIGRAM/SQ. METER, BID, 1.6 MG/M2/DOSE

REACTIONS (7)
  - Thrombocytopenia [Unknown]
  - Hypertension [Unknown]
  - Diarrhoea [Unknown]
  - Proteinuria [Unknown]
  - Disease progression [Unknown]
  - Drug ineffective [Unknown]
  - Off label use [Unknown]
